FAERS Safety Report 9402775 (Version 3)
Quarter: 2013Q3

REPORT INFORMATION
  Report Type: Spontaneous
  Country: FR (occurrence: FR)
  Receive Date: 20130716
  Receipt Date: 20130806
  Transmission Date: 20140515
  Serious: Yes (Death, Hospitalization)
  Sender: FDA-Public Use
  Company Number: FR-GE HEALTHCARE MEDICAL DIAGNOSTICS-OMPQ-PR-1307S-0855

PATIENT
  Age: 66 Year
  Sex: Male

DRUGS (4)
  1. OMNIPAQUE [Suspect]
     Indication: PRODUCT USED FOR UNKNOWN INDICATION
     Route: 042
     Dates: start: 20130417, end: 20130417
  2. OMNIPAQUE [Suspect]
     Indication: DIAGNOSTIC PROCEDURE
  3. VANCOMYCIN [Suspect]
     Indication: SKIN ULCER
     Route: 017
     Dates: start: 20130405, end: 20130422
  4. ROCEPHINE [Suspect]
     Indication: SKIN ULCER
     Dates: start: 20130405

REACTIONS (2)
  - Renal failure acute [Fatal]
  - Rash maculo-papular [Recovered/Resolved]
